FAERS Safety Report 24070876 (Version 2)
Quarter: 2024Q3

REPORT INFORMATION
  Report Type: Report from Study
  Country: TR (occurrence: TR)
  Receive Date: 20240710
  Receipt Date: 20240710
  Transmission Date: 20241017
  Serious: No
  Sender: ROCHE
  Company Number: TR-ROCHE-3194063

PATIENT
  Age: 48 Year
  Sex: Female
  Weight: 116.0 kg

DRUGS (4)
  1. ALECTINIB [Suspect]
     Active Substance: ALECTINIB
     Indication: Lung cancer metastatic
     Route: 048
     Dates: start: 20220603
  2. TRIMEBUTIN MALEAT [Concomitant]
     Indication: Abdominal pain upper
     Route: 048
     Dates: end: 20220919
  3. BUTORPHANOL [Concomitant]
     Active Substance: BUTORPHANOL
     Indication: Myalgia
     Route: 048
     Dates: end: 20220919
  4. ACETAMINOPHEN\CHLORPHENIRAMINE [Concomitant]
     Active Substance: ACETAMINOPHEN\CHLORPHENIRAMINE
     Indication: Pain
     Dosage: 4/650 MG
     Route: 048

REACTIONS (1)
  - Dyspepsia [Recovered/Resolved]

NARRATIVE: CASE EVENT DATE: 20220919
